FAERS Safety Report 4932941-0 (Version None)
Quarter: 2006Q1

REPORT INFORMATION
  Report Type: 
  Country: None (occurrence: None)
  Receive Date: 20060301
  Receipt Date: 20060301
  Transmission Date: 20060701
  Serious: Yes (Other)
  Sender: FDA-Public Use
  Company Number: None

PATIENT
  Age: 2 Year
  Sex: Male
  Weight: 12.2471 kg

DRUGS (2)
  1. ATARAX [Suspect]
     Indication: PRURITUS
     Dosage: 10 MG  DAILY  PO
     Route: 048
     Dates: start: 20050203, end: 20060220
  2. PRILOSEC [Suspect]
     Indication: GASTROOESOPHAGEAL REFLUX DISEASE
     Dosage: 10 MG  DAILY  PO
     Route: 048
     Dates: start: 20050203, end: 20060220

REACTIONS (2)
  - MEDICATION ERROR [None]
  - UNEVALUABLE EVENT [None]
